FAERS Safety Report 8298273-0 (Version None)
Quarter: 2012Q2

REPORT INFORMATION
  Report Type: 
  Country: None (occurrence: None)
  Receive Date: 20120419
  Receipt Date: 20120124
  Transmission Date: 20120825
  Serious: Yes (Death)
  Sender: FDA-Public Use
  Company Number: US-BRISTOL-MYERS SQUIBB COMPANY-16365819

PATIENT
  Age: 67 Year
  Sex: Male
  Weight: 125 kg

DRUGS (15)
  1. DIGOXIN [Concomitant]
  2. LEVOFLOXACIN [Concomitant]
  3. MORPHINE SULFATE [Concomitant]
  4. LORAZEPAM [Concomitant]
  5. YERVOY [Suspect]
     Dates: start: 20111130
  6. JANUVIA [Concomitant]
  7. LENOXIN [Concomitant]
  8. OXYCONTIN [Concomitant]
  9. ONDANSETRON HCL [Concomitant]
  10. DIOVAN HCT [Concomitant]
  11. ZOLPIDEM [Concomitant]
  12. ATENOLOL [Concomitant]
  13. PROCHLORPERAZINE [Concomitant]
  14. SIMVASTATIN [Concomitant]
  15. OMEPRAZOLE [Concomitant]

REACTIONS (1)
  - NEOPLASM MALIGNANT [None]
